FAERS Safety Report 5713405-3 (Version None)
Quarter: 2008Q2

REPORT INFORMATION
  Report Type: 
  Country: None (occurrence: None)
  Receive Date: 20080422
  Receipt Date: 20080411
  Transmission Date: 20081010
  Serious: Yes (Hospitalization)
  Sender: FDA-Public Use
  Company Number: JP-PFIZER INC-2008031949

PATIENT
  Age: 53 Year
  Sex: Male
  Weight: 58.5 kg

DRUGS (11)
  1. AMLODIPINE [Suspect]
     Dosage: DAILY DOSE:10MG
     Route: 048
  2. FAMOTIDINE [Concomitant]
     Dosage: DAILY DOSE:10MG
     Route: 048
  3. CORTRIL [Concomitant]
     Dosage: DAILY DOSE:10MG
     Route: 048
  4. METOPROLOL TARTRATE [Concomitant]
     Dosage: DAILY DOSE:20MG
     Route: 048
  5. NIFEDIPINE [Concomitant]
     Dosage: DAILY DOSE:40MG
     Route: 048
  6. OLMESARTAN MEDOXOMIL [Concomitant]
     Dosage: DAILY DOSE:40MG
     Route: 048
  7. BERAPROST SODIUM [Concomitant]
     Dosage: DAILY DOSE:120MCG
     Route: 048
  8. MECOBALAMIN [Concomitant]
     Dosage: DAILY DOSE:1500MCG
     Route: 048
  9. SEVELAMER HYDROCHLORIDE [Concomitant]
     Dosage: DAILY DOSE:2.25GRAM
     Route: 048
  10. CALCIUM CARBONATE [Concomitant]
     Dosage: DAILY DOSE:3GRAM
     Route: 048
  11. NICORANDIL [Concomitant]
     Dosage: DAILY DOSE:15MG
     Route: 048

REACTIONS (3)
  - EOSINOPHILIA [None]
  - EOSINOPHILIC PNEUMONIA [None]
  - THROMBOCYTOPENIA [None]
